FAERS Safety Report 5187825-2 (Version None)
Quarter: 2006Q4

REPORT INFORMATION
  Report Type: 
  Country: None (occurrence: None)
  Receive Date: 20061221
  Receipt Date: 20061124
  Transmission Date: 20070319
  Serious: Yes (Other)
  Sender: FDA-Public Use
  Company Number: PHEH2006US14587

PATIENT
  Age: 66 Year
  Sex: Male
  Weight: 80.7 kg

DRUGS (14)
  1. EXJADE [Suspect]
     Indication: IRON OVERLOAD
     Dosage: 1500 MG, QD
     Route: 048
  2. EXJADE [Suspect]
     Dosage: 500 MG, QD
     Route: 048
     Dates: end: 20061207
  3. LIPITOR [Concomitant]
     Dosage: 20 MG, QD
  4. ATENOLOL [Concomitant]
     Dosage: 50 MG, QD
     Route: 048
  5. NITROGLYCERIN [Concomitant]
     Dosage: 0.4 MG, UNK
     Route: 060
  6. PLAVIX [Concomitant]
     Dosage: 75 MG, UNK
     Route: 048
  7. WARFARIN SODIUM [Concomitant]
     Dosage: 2.5MG ALTERNATING WITH 5MG DAILY
  8. NEXIUM [Concomitant]
     Dosage: 40 MG, QD
     Route: 048
  9. DESFERAL [Concomitant]
     Dosage: 2000 MG, PRN
     Route: 042
  10. FOLIC ACID [Concomitant]
     Dosage: 1 MG, QD
     Route: 048
  11. ASPIRIN [Concomitant]
     Dosage: 81 MG, QD
     Route: 048
  12. MULTI-VITAMIN [Concomitant]
     Dosage: 1 UNK, QD
     Route: 048
  13. VITAMIN D [Concomitant]
     Dosage: 400 U, QD
     Route: 048
  14. RED BLOOD CELLS [Concomitant]

REACTIONS (10)
  - ABDOMINAL PAIN [None]
  - CHROMATURIA [None]
  - DERMATITIS ALLERGIC [None]
  - DIARRHOEA [None]
  - DIZZINESS [None]
  - FATIGUE [None]
  - FEELING ABNORMAL [None]
  - HAEMOGLOBIN DECREASED [None]
  - HAEMOLYSIS [None]
  - RASH PRURITIC [None]
